FAERS Safety Report 5129340-8 (Version None)
Quarter: 2006Q4

REPORT INFORMATION
  Report Type: 
  Country: None (occurrence: None)
  Receive Date: 20061011
  Receipt Date: 20060925
  Transmission Date: 20070319
  Serious: Yes (Death)
  Sender: FDA-Public Use
  Company Number: US018364

PATIENT
  Age: 70 Year
  Sex: Male

DRUGS (1)
  1. ARSENIC TRIOXIDE [Suspect]
     Indication: ADULT T-CELL LYMPHOMA/LEUKAEMIA
     Dosage: 0.15 MG/KG QD INTRAVENOUS DRIP
     Route: 041

REACTIONS (3)
  - LEUKAEMIC INFILTRATION PULMONARY [None]
  - PNEUMONIA [None]
  - RESPIRATORY FAILURE [None]
